FAERS Safety Report 7815940-0 (Version None)
Quarter: 2011Q4

REPORT INFORMATION
  Report Type: 
  Country: None (occurrence: None)
  Receive Date: 20111014
  Receipt Date: 20110923
  Transmission Date: 20120403
  Serious: Yes (Death)
  Sender: FDA-Public Use
  Company Number: US-ROCHE-1001437

PATIENT
  Age: 47 Year
  Sex: Male

DRUGS (3)
  1. ACTIVASE [Suspect]
     Indication: THROMBOSIS IN DEVICE
  2. ASPIRIN [Concomitant]
  3. WARFARIN SODIUM [Concomitant]
     Indication: ANTICOAGULANT THERAPY

REACTIONS (3)
  - CAROTID ARTERY OCCLUSION [None]
  - EMBOLIC STROKE [None]
  - NEUROLOGICAL SYMPTOM [None]
